FAERS Safety Report 15331186 (Version 2)
Quarter: 2018Q3

REPORT INFORMATION
  Report Type: Spontaneous
  Country: US (occurrence: US)
  Receive Date: 20180829
  Receipt Date: 20180912
  Transmission Date: 20181010
  Serious: Yes (Other)
  Sender: FDA-Public Use
  Company Number: US-DENDREON PHARMACEUTICALS LLC-2018DEN000371

PATIENT

DRUGS (2)
  1. PROVENGE [Suspect]
     Active Substance: SIPULEUCEL-T
     Indication: PRODUCT USED FOR UNKNOWN INDICATION
     Dosage: UNK
     Route: 042
     Dates: start: 20180723, end: 20180723
  2. PROVENGE [Suspect]
     Active Substance: SIPULEUCEL-T
     Dosage: UNK
     Route: 042
     Dates: start: 20180813, end: 20180813

REACTIONS (2)
  - Cardiac disorder [Unknown]
  - Thrombosis in device [Unknown]

NARRATIVE: CASE EVENT DATE: 201808
